FAERS Safety Report 15859559 (Version 1)
Quarter: 2019Q1

REPORT INFORMATION
  Report Type: Spontaneous
  Country: FR (occurrence: FR)
  Receive Date: 20190123
  Receipt Date: 20190123
  Transmission Date: 20190417
  Serious: Yes (Hospitalization)
  Sender: FDA-Public Use
  Company Number: FR-ELI_LILLY_AND_COMPANY-FR201901006464

PATIENT
  Age: 52 Year
  Sex: Male

DRUGS (2)
  1. CISPLATINE [Suspect]
     Active Substance: CISPLATIN
     Indication: NEOPLASM MALIGNANT
     Dosage: 1 DF, UNKNOWN
     Route: 065
     Dates: start: 20181018, end: 20181108
  2. ALIMTA [Suspect]
     Active Substance: PEMETREXED DISODIUM
     Indication: NEOPLASM MALIGNANT
     Dosage: 1 DF, UNKNOWN
     Route: 065
     Dates: start: 20181018, end: 20181108

REACTIONS (2)
  - Peripheral ischaemia [Recovered/Resolved]
  - Cyanosis [Not Recovered/Not Resolved]

NARRATIVE: CASE EVENT DATE: 20181108
